FAERS Safety Report 8530449-7 (Version None)
Quarter: 2012Q3

REPORT INFORMATION
  Report Type: 
  Country: None (occurrence: None)
  Receive Date: 20120723
  Receipt Date: 20120717
  Transmission Date: 20120928
  Serious: Yes (Other)
  Sender: FDA-Public Use
  Company Number: US-SANOFI-AVENTIS-2012SA051077

PATIENT
  Age: 57 Year
  Sex: Female

DRUGS (1)
  1. ALLEGRA [Suspect]
     Dates: start: 19970101

REACTIONS (1)
  - CROHN'S DISEASE [None]
